FAERS Safety Report 6338415-7 (Version None)
Quarter: 2009Q3

REPORT INFORMATION
  Report Type: 
  Country: None (occurrence: None)
  Receive Date: 20090901
  Receipt Date: 20090817
  Transmission Date: 20100115
  Serious: Yes (Death)
  Sender: FDA-Public Use
  Company Number: 2009AL000707

PATIENT
  Sex: Male

DRUGS (24)
  1. DIGOXIN [Suspect]
     Indication: HEART RATE IRREGULAR
     Dosage: PO; 0.25MG DAILY PO
     Route: 048
  2. PNEUMOCOCCAL VACCINE [Concomitant]
  3. COREG [Concomitant]
  4. COUMADIN [Concomitant]
  5. NEXIUM [Concomitant]
  6. NABUMETONE [Concomitant]
  7. FOLIC ACID [Concomitant]
  8. ARAVA [Concomitant]
  9. LORAZEPAM [Concomitant]
  10. METHOTREXATE [Concomitant]
  11. LOMOTIL [Concomitant]
  12. DOXICYCLINE [Concomitant]
  13. LASIX [Concomitant]
  14. OXYGEN [Concomitant]
  15. JANTOVEN [Concomitant]
  16. NITROGLYCERIN [Concomitant]
  17. MOBIC [Concomitant]
  18. HYDROCODONE BITARTRATE [Concomitant]
  19. ALEVE [Concomitant]
  20. LIPITOR [Concomitant]
  21. POTASSIUM CHLORIDE [Concomitant]
  22. NABUMETONE [Concomitant]
  23. LASIX [Concomitant]
  24. PREDNISONE [Concomitant]

REACTIONS (20)
  - ABDOMINAL DISTENSION [None]
  - ACUTE MYOCARDIAL INFARCTION [None]
  - ACUTE PULMONARY OEDEMA [None]
  - ANXIETY [None]
  - CHRONIC OBSTRUCTIVE PULMONARY DISEASE [None]
  - ECONOMIC PROBLEM [None]
  - FLUID OVERLOAD [None]
  - HEADACHE [None]
  - HEMIPARESIS [None]
  - HYPOXIA [None]
  - JAUNDICE [None]
  - LUNG ADENOCARCINOMA [None]
  - MENTAL DISORDER [None]
  - MULTIPLE INJURIES [None]
  - PAIN [None]
  - RENAL FAILURE [None]
  - RHINORRHOEA [None]
  - SUPRAVENTRICULAR EXTRASYSTOLES [None]
  - THERAPEUTIC AGENT TOXICITY [None]
  - UNEVALUABLE EVENT [None]
